FAERS Safety Report 6292512-3 (Version None)
Quarter: 2009Q3

REPORT INFORMATION
  Report Type: 
  Country: None (occurrence: None)
  Receive Date: 20090731
  Receipt Date: 20090721
  Transmission Date: 20100115
  Serious: Yes (Hospitalization)
  Sender: FDA-Public Use
  Company Number: JP-PFIZER INC-2009228669

PATIENT
  Age: 62 Year

DRUGS (15)
  1. VFEND [Suspect]
     Indication: PNEUMONIA CRYPTOCOCCAL
     Dosage: 150 MG, 2X/DAY
     Route: 048
     Dates: start: 20090526, end: 20090526
  2. VFEND [Suspect]
     Dosage: 100 MG, 2X/DAY
     Route: 048
     Dates: start: 20090527, end: 20090608
  3. PREDNISOLONE [Suspect]
     Indication: MUSCULOSKELETAL PAIN
     Dosage: 10 MG, 2X/DAY
     Route: 048
     Dates: start: 20070101
  4. CYANOCOBALAMIN [Concomitant]
     Dosage: UNK
     Route: 048
     Dates: start: 20070101
  5. BREDININ [Concomitant]
     Dosage: UNK
     Route: 048
     Dates: start: 20070101
  6. PRORENAL [Concomitant]
     Dosage: UNK
     Route: 048
     Dates: start: 20070101
  7. RHEUMATREX [Concomitant]
     Dosage: UNK
     Route: 048
     Dates: start: 20070101
  8. CALONAL [Concomitant]
     Dosage: UNK
     Route: 048
     Dates: start: 20070101
  9. LENDORMIN [Concomitant]
     Dosage: UNK
     Route: 048
     Dates: start: 20070101
  10. VOLTAREN [Concomitant]
     Dosage: UNK
     Dates: start: 20070101
  11. KREMEZIN [Concomitant]
     Dosage: UNK
     Route: 048
     Dates: start: 20070101
  12. ATELEC [Concomitant]
     Dosage: UNK
     Route: 048
     Dates: start: 20070101
  13. TAKEPRON [Concomitant]
     Dosage: UNK
     Route: 048
     Dates: start: 20070101
  14. MUCOSTA [Concomitant]
     Dosage: UNK
     Route: 048
     Dates: start: 20070101
  15. THYRADIN S [Concomitant]
     Dosage: UNK
     Route: 048
     Dates: start: 20070101

REACTIONS (1)
  - HYPERGLYCAEMIA [None]
